FAERS Safety Report 4543978-8 (Version None)
Quarter: 2005Q1

REPORT INFORMATION
  Report Type: 
  Country: None (occurrence: None)
  Receive Date: 20050103
  Receipt Date: 20040113
  Transmission Date: 20050727
  Serious: Yes (Hospitalization)
  Sender: FDA-Public Use
  Company Number: GXKR2004FI00510

PATIENT
  Age: 91 Year
  Sex: Female
  Weight: 53 kg

DRUGS (2)
  1. AMOXICILLIN AND CLAVULANATE POTASSIUM [Suspect]
     Indication: UPPER RESPIRATORY TRACT INFECTION
     Dosage: 875 MG, BID, ORAL
     Route: 048
     Dates: start: 20031212, end: 20031214
  2. LEVOFLOXACIN [Concomitant]

REACTIONS (3)
  - C-REACTIVE PROTEIN INCREASED [None]
  - HAEMOGLOBIN INCREASED [None]
  - HALLUCINATION [None]
